FAERS Safety Report 8904784 (Version 1)
Quarter: 2012Q4

REPORT INFORMATION
  Report Type: 
  Country: GB (occurrence: GB)
  Receive Date: 20121109
  Receipt Date: 20121109
  Transmission Date: 20130627
  Serious: Yes (Hospitalization)
  Sender: FDA-Public Use
  Company Number: GB-ASTRAZENECA-2012SE83215

PATIENT
  Age: 16436 Day
  Sex: Female

DRUGS (21)
  1. BRILIQUE [Suspect]
     Route: 048
  2. MYCOPHENOLATE MOFETIL [Suspect]
     Route: 065
  3. MINOCYCLINE [Suspect]
     Route: 065
  4. ASPIRIN [Concomitant]
     Route: 048
  5. PARACETAMOL [Concomitant]
  6. RAMIPRIL [Concomitant]
  7. CODEINE [Concomitant]
  8. CYCLIZINE [Concomitant]
  9. FUROSEMIDE [Concomitant]
  10. GLYCERYL TRINITRATE [Concomitant]
  11. LACTULOSE [Concomitant]
  12. LANSOPRAZOLE [Concomitant]
  13. MORPHINE HYDROCHLORIDE [Concomitant]
  14. PIZOTIFEN [Concomitant]
  15. SALBUTAMOL [Concomitant]
     Route: 055
  16. SENNA [Concomitant]
  17. SERETIDE [Concomitant]
  18. SIMVASTATIN [Concomitant]
  19. SODIUM CROMOGLICATE [Concomitant]
  20. SPIRIVA [Concomitant]
     Route: 055
  21. SPIRONOLACTONE [Concomitant]

REACTIONS (3)
  - Liver function test abnormal [Recovering/Resolving]
  - Hepatitis [Recovering/Resolving]
  - Hepatotoxicity [Unknown]
